FAERS Safety Report 8269857-0 (Version None)
Quarter: 2012Q2

REPORT INFORMATION
  Report Type: 
  Country: None (occurrence: None)
  Receive Date: 20120410
  Receipt Date: 20120329
  Transmission Date: 20120825
  Serious: Yes (Other)
  Sender: FDA-Public Use
  Company Number: US-JNJFOC-20120213161

PATIENT
  Sex: Male

DRUGS (2)
  1. REMICADE [Suspect]
     Indication: CROHN'S DISEASE
     Dosage: APPROXIMATELY 12 INFUSIONS TO DATE
     Route: 042
     Dates: start: 20101001
  2. PAXIL [Concomitant]
     Indication: DEPRESSION
     Route: 048

REACTIONS (2)
  - GLIOMA [None]
  - CONVULSION [None]
